FAERS Safety Report 10247928 (Version 1)
Quarter: 2014Q2

REPORT INFORMATION
  Report Type: Spontaneous
  Country: FR (occurrence: FR)
  Receive Date: 20140619
  Receipt Date: 20140619
  Transmission Date: 20141212
  Serious: Yes (Other)
  Sender: FDA-Public Use
  Company Number: FR-TAKEDA-2014MPI001678

PATIENT
  Sex: 0

DRUGS (10)
  1. VELCADE [Suspect]
     Indication: PLASMACYTOMA
     Dosage: 1.3 MG/M2, ON DAYS 1, 4, 8, 11 OF 21 DAYS CYCLE
     Route: 042
     Dates: start: 20101104, end: 20110513
  2. VELCADE [Suspect]
     Indication: MONOCLONAL GAMMOPATHY
  3. DEXAMETHASONE [Suspect]
     Indication: PLASMACYTOMA
     Dosage: 4 MG, ON DAY 4 OF 21 DAYS CYCLE
     Route: 065
     Dates: start: 20101104, end: 20110513
  4. DEXAMETHASONE [Suspect]
     Indication: MONOCLONAL GAMMOPATHY
  5. DOXORUBICIN [Suspect]
     Indication: PLASMACYTOMA
     Dosage: 30 MG/M2, ON DAY 4 OF 21 DAYS CYCLE
     Route: 065
     Dates: start: 20101104, end: 20110513
  6. DOXORUBICIN [Suspect]
     Indication: MONOCLONAL GAMMOPATHY
  7. RIFAMPICINE [Suspect]
     Indication: LATENT TUBERCULOSIS
     Dosage: 600 MG, QD
     Route: 065
     Dates: start: 20101203, end: 20110223
  8. LENALIDOMIDE [Suspect]
     Indication: PLASMACYTOMA
     Dosage: 25 MG, FOR 21 DAYS EVERY 28 DAYS
     Route: 065
     Dates: start: 20110107, end: 20110513
  9. LENALIDOMIDE [Suspect]
     Indication: MONOCLONAL GAMMOPATHY
  10. ISONIAZID [Suspect]
     Indication: LATENT TUBERCULOSIS
     Dosage: 300 MG, QD
     Route: 065
     Dates: start: 20101203, end: 20110223

REACTIONS (4)
  - Latent tuberculosis [Unknown]
  - Drug interaction [Unknown]
  - Transaminases increased [Unknown]
  - Gamma-glutamyltransferase increased [Unknown]
